FAERS Safety Report 11651447 (Version 4)
Quarter: 2017Q2

REPORT INFORMATION
  Report Type: Spontaneous
  Country: US (occurrence: US)
  Receive Date: 20151022
  Receipt Date: 20170428
  Transmission Date: 20170829
  Serious: No
  Sender: FDA-Public Use
  Company Number: US-ASTRAZENECA-2014SE09017

PATIENT
  Age: 25687 Day
  Sex: Female
  Weight: 90.3 kg

DRUGS (10)
  1. LISINOPRIL. [Suspect]
     Active Substance: LISINOPRIL
     Indication: BLOOD CHOLESTEROL ABNORMAL
     Route: 048
  2. LEVOTHYROXINE. [Concomitant]
     Active Substance: LEVOTHYROXINE
     Indication: HYPOTHYROIDISM
     Route: 048
  3. IRON [Concomitant]
     Active Substance: IRON
     Dosage: DAILY
     Route: 048
  4. MELOXICAM. [Concomitant]
     Active Substance: MELOXICAM
     Dosage: 15.0MG AS REQUIRED
     Route: 048
  5. BYETTA [Suspect]
     Active Substance: EXENATIDE
     Indication: TYPE 2 DIABETES MELLITUS
     Dosage: 250 MCG / 1.2 ML PEN, TWO TIMES A DAY
     Route: 058
     Dates: start: 2010
  6. BYDUREON [Suspect]
     Active Substance: EXENATIDE
     Indication: TYPE 2 DIABETES MELLITUS
     Route: 058
  7. VITAMIN D [Concomitant]
     Active Substance: CHOLECALCIFEROL
     Route: 048
  8. SYNTHROID [Concomitant]
     Active Substance: LEVOTHYROXINE SODIUM
     Route: 048
  9. VITAMIN B12 [Concomitant]
     Active Substance: CYANOCOBALAMIN
     Route: 048
  10. METFORMIN HYDROCHLORIDE. [Concomitant]
     Active Substance: METFORMIN HYDROCHLORIDE
     Indication: DIABETES MELLITUS
     Route: 048

REACTIONS (19)
  - Injection site pallor [Unknown]
  - Underdose [Unknown]
  - Muscular weakness [Recovering/Resolving]
  - Influenza [Recovering/Resolving]
  - Injection site mass [Unknown]
  - Diarrhoea [Recovering/Resolving]
  - Asthenia [Not Recovered/Not Resolved]
  - Injection site extravasation [Unknown]
  - Blood cholesterol increased [Unknown]
  - Drug dose omission [Recovered/Resolved]
  - Product leakage [Unknown]
  - Myalgia [Recovering/Resolving]
  - Weight increased [Unknown]
  - Injection site haemorrhage [Unknown]
  - Scratch [Unknown]
  - Amnesia [Unknown]
  - Injection site nodule [Not Recovered/Not Resolved]
  - Injection site discolouration [Unknown]
  - Injection site pain [Unknown]

NARRATIVE: CASE EVENT DATE: 20140119
